FAERS Safety Report 11775388 (Version 1)
Quarter: 2015Q4

REPORT INFORMATION
  Report Type: Spontaneous
  Country: US (occurrence: US)
  Receive Date: 20151125
  Receipt Date: 20151125
  Transmission Date: 20160304
  Serious: No
  Sender: FDA-Public Use
  Company Number: US-JNJFOC-20151112939

PATIENT
  Age: 59 Year
  Sex: Female

DRUGS (2)
  1. INVEGA [Suspect]
     Active Substance: PALIPERIDONE
     Indication: DEPRESSION
     Route: 048
     Dates: start: 201504
  2. INVEGA [Suspect]
     Active Substance: PALIPERIDONE
     Indication: BIPOLAR DISORDER
     Route: 048
     Dates: start: 201504

REACTIONS (3)
  - Dyspepsia [Recovered/Resolved]
  - Product use issue [Unknown]
  - Off label use [Unknown]
